FAERS Safety Report 5165243-0 (Version None)
Quarter: 2006Q4

REPORT INFORMATION
  Report Type: 
  Country: None (occurrence: None)
  Receive Date: 20061124
  Receipt Date: 20061113
  Transmission Date: 20070319
  Serious: Yes (Life-Threatening)
  Sender: FDA-Public Use
  Company Number: 2006140975

PATIENT
  Age: 28 Year
  Sex: Female

DRUGS (1)
  1. DEPO-PROVERA [Suspect]
     Indication: CONTRACEPTION
     Dosage: (SINGLE INJECTION), INTRAMUSCULAR
     Route: 030
     Dates: start: 20031204, end: 20031204

REACTIONS (3)
  - RASH [None]
  - URTICARIA [None]
  - WHEEZING [None]
